FAERS Safety Report 14237709 (Version 2)
Quarter: 2019Q4

REPORT INFORMATION
  Report Type: Spontaneous
  Country: BR (occurrence: BR)
  Receive Date: 20171129
  Receipt Date: 20191216
  Transmission Date: 20200122
  Serious: Yes (Other)
  Sender: FDA-Public Use
  Company Number: BR-AMGEN-BRASP2017177754

PATIENT
  Age: 78 Year
  Sex: Female

DRUGS (1)
  1. ENBREL [Suspect]
     Active Substance: ETANERCEPT
     Indication: RHEUMATOID ARTHRITIS
     Dosage: UNK
     Route: 065
     Dates: start: 2013

REACTIONS (8)
  - Dysstasia [Unknown]
  - Foot deformity [Unknown]
  - Arthralgia [Not Recovered/Not Resolved]
  - Spinal fracture [Unknown]
  - Glaucoma [Unknown]
  - Fall [Unknown]
  - Bone loss [Unknown]
  - Finger deformity [Unknown]

NARRATIVE: CASE EVENT DATE: 20161008
